FAERS Safety Report 6291533-4 (Version None)
Quarter: 2009Q3

REPORT INFORMATION
  Report Type: 
  Country: None (occurrence: None)
  Receive Date: 20090730
  Receipt Date: 20090720
  Transmission Date: 20100115
  Serious: Yes (Other)
  Sender: FDA-Public Use
  Company Number: US-ELI_LILLY_AND_COMPANY-US200907004712

PATIENT
  Sex: Male

DRUGS (16)
  1. STRATTERA [Suspect]
     Indication: AMNESIA
     Dosage: 180 MG, DAILY (1/D)
     Route: 065
     Dates: start: 20090401
  2. STRATTERA [Suspect]
     Dosage: 200 MG, DAILY (1/D)
     Route: 065
  3. STRATTERA [Suspect]
     Dosage: 180 MG, DAILY (1/D)
     Route: 065
  4. EFFEXOR [Concomitant]
  5. SEROQUEL [Concomitant]
  6. METFORMIN [Concomitant]
  7. FLOMAX [Concomitant]
  8. GLYCOLAX [Concomitant]
  9. HYZAAR [Concomitant]
  10. LYRICA [Concomitant]
  11. SYNTHROID [Concomitant]
     Dosage: 75 UG, UNK
  12. AGGRENOX [Concomitant]
  13. TRICOR [Concomitant]
     Dosage: 48 MG, UNK
  14. ZETIA [Concomitant]
     Dosage: 10 MG, UNK
  15. SPIRIVA [Concomitant]
     Dosage: UNK, DAILY (1/D)
     Route: 055
  16. ADVAIR HFA [Concomitant]
     Dosage: UNK, 2/D

REACTIONS (4)
  - BLOOD PRESSURE INCREASED [None]
  - EPISTAXIS [None]
  - OFF LABEL USE [None]
  - OVERDOSE [None]
